FAERS Safety Report 6234933-0 (Version None)
Quarter: 2009Q2

REPORT INFORMATION
  Report Type: 
  Country: None (occurrence: None)
  Receive Date: 20090618
  Receipt Date: 20090609
  Transmission Date: 20091009
  Serious: Yes (Other)
  Sender: FDA-Public Use
  Company Number: B0548723A

PATIENT
  Sex: Female

DRUGS (2)
  1. LAMICTAL [Suspect]
     Indication: EPILEPSY
     Route: 048
  2. FOLIC ACID [Concomitant]

REACTIONS (6)
  - DRUG EXPOSURE DURING PREGNANCY [None]
  - EPILEPSY [None]
  - LACTATION DISORDER [None]
  - LIVE BIRTH [None]
  - PARTIAL SEIZURES [None]
  - PREGNANCY [None]
